FAERS Safety Report 14325361 (Version 2)
Quarter: 2019Q4

REPORT INFORMATION
  Report Type: Spontaneous
  Country: IT (occurrence: IT)
  Receive Date: 20171226
  Receipt Date: 20191212
  Transmission Date: 20200122
  Serious: Yes (Other)
  Sender: FDA-Public Use
  Company Number: IT-PTC THERAPEUTICS, INC.-IT-2017PTC001577

PATIENT
  Age: 8 Year
  Sex: Male
  Weight: 36 kg

DRUGS (1)
  1. TRANSLARNA [Suspect]
     Active Substance: ATALUREN
     Indication: DUCHENNE MUSCULAR DYSTROPHY
     Dosage: 1375 MG, QD
     Route: 048
     Dates: start: 20160612, end: 20171113

REACTIONS (1)
  - Precocious puberty [Not Recovered/Not Resolved]

NARRATIVE: CASE EVENT DATE: 20161230
